FAERS Safety Report 18282023 (Version 3)
Quarter: 2020Q4

REPORT INFORMATION
  Report Type: Spontaneous
  Country: US (occurrence: US)
  Receive Date: 20200918
  Receipt Date: 20201127
  Transmission Date: 20210113
  Serious: Yes (Disabling, Other)
  Sender: FDA-Public Use
  Company Number: US-ASTRAZENECA-2020SF17883

PATIENT
  Age: 26490 Day
  Sex: Female
  Weight: 78.5 kg

DRUGS (6)
  1. ANASTROZOLE. [Concomitant]
     Active Substance: ANASTROZOLE
  2. DECADRON [Concomitant]
     Active Substance: DEXAMETHASONE
     Dosage: 4.0MG UNKNOWN
  3. FULVESTRANT. [Suspect]
     Active Substance: FULVESTRANT
     Indication: BREAST CANCER METASTATIC
     Dosage: 500.0MG UNKNOWN
     Route: 030
     Dates: start: 20191120, end: 20200608
  4. IBRANCE [Suspect]
     Active Substance: PALBOCICLIB
     Indication: BREAST CANCER METASTATIC
     Route: 048
  5. HYDROXYZINE [Concomitant]
     Active Substance: HYDROXYZINE HYDROCHLORIDE
     Indication: RASH
     Route: 030
  6. IBRANCE [Suspect]
     Active Substance: PALBOCICLIB
     Indication: BREAST CANCER METASTATIC
     Dosage: 125MG BY MOUTH 21 DAYS THEN OFF 7 DAYS AND THEN START BACK 21 DAYS
     Route: 048
     Dates: start: 20191130, end: 20201119

REACTIONS (14)
  - Headache [Unknown]
  - Restlessness [Unknown]
  - Bone cancer [Unknown]
  - Breast pain [Not Recovered/Not Resolved]
  - Skin burning sensation [Unknown]
  - Anxiety [Unknown]
  - Rash [Recovered/Resolved]
  - Alopecia [Unknown]
  - Back pain [Unknown]
  - Hot flush [Unknown]
  - Body height decreased [Unknown]
  - Asthenia [Unknown]
  - General physical condition abnormal [Unknown]
  - Inability to afford medication [Unknown]

NARRATIVE: CASE EVENT DATE: 20191212
